FAERS Safety Report 6022706-3 (Version None)
Quarter: 2008Q4

REPORT INFORMATION
  Report Type: 
  Country: None (occurrence: None)
  Receive Date: 20081230
  Receipt Date: 20081114
  Transmission Date: 20090506
  Serious: Yes (Hospitalization)
  Sender: FDA-Public Use
  Company Number: US-BRISTOL-MYERS SQUIBB COMPANY-14379580

PATIENT
  Age: 71 Year
  Sex: Male
  Weight: 104 kg

DRUGS (6)
  1. SPRYCEL [Suspect]
     Indication: CHRONIC MYELOID LEUKAEMIA
     Route: 048
     Dates: start: 20080718
  2. SPRYCEL [Suspect]
     Indication: RENAL CELL CARCINOMA
     Route: 048
     Dates: start: 20080718
  3. TOPROL-XL [Concomitant]
  4. LOTREL [Concomitant]
  5. AVODART [Concomitant]
  6. PRAVASTATIN SODIUM [Concomitant]

REACTIONS (1)
  - CARDIAC FAILURE CONGESTIVE [None]
